FAERS Safety Report 4759176-9 (Version None)
Quarter: 2005Q3

REPORT INFORMATION
  Report Type: 
  Country: None (occurrence: None)
  Receive Date: 20050901
  Receipt Date: 20050808
  Transmission Date: 20060218
  Serious: Yes (Hospitalization)
  Sender: FDA-Public Use
  Company Number: 2005AP04350

PATIENT
  Age: 19194 Day
  Sex: Male
  Weight: 79 kg

DRUGS (10)
  1. IRESSA [Suspect]
     Indication: LUNG ADENOCARCINOMA
     Route: 048
     Dates: start: 20040206, end: 20050310
  2. IRESSA [Suspect]
     Route: 048
     Dates: start: 20050323, end: 20050526
  3. RADIATION THERAPY [Suspect]
     Dosage: ADMINISTERED TO TH5, TH7, TH12, L2 AND BRAIN METS
     Dates: start: 20030501
  4. RADIATION THERAPY [Suspect]
     Dosage: STEREOTAXIC RADIATION
     Dates: start: 20050316
  5. EURODIN [Concomitant]
     Indication: INSOMNIA
     Route: 048
     Dates: start: 20040217, end: 20050526
  6. MYSLEE [Concomitant]
     Route: 048
     Dates: start: 20050513, end: 20050526
  7. CARBOPLATIN [Concomitant]
     Dosage: 2 COURSES
     Dates: start: 20030501
  8. TAXOL [Concomitant]
     Dosage: 2 COURSES
     Dates: start: 20030501
  9. GEMCITABINE [Concomitant]
     Dosage: 2 COURSES
     Dates: start: 20030501
  10. VINORELBINE [Concomitant]
     Dosage: 2 COURSES
     Dates: start: 20030501

REACTIONS (5)
  - ANOREXIA [None]
  - METASTASES TO CENTRAL NERVOUS SYSTEM [None]
  - NAUSEA [None]
  - PAROSMIA [None]
  - WEIGHT DECREASED [None]
